FAERS Safety Report 25107576 (Version 1)
Quarter: 2025Q1

REPORT INFORMATION
  Report Type: Spontaneous
  Country: US (occurrence: US)
  Receive Date: 20250321
  Receipt Date: 20250321
  Transmission Date: 20250409
  Serious: No
  Sender: MERCK SHARP & DOHME LLC
  Company Number: US-009507513-2264880

PATIENT
  Age: 0 Year
  Sex: Male

DRUGS (4)
  1. VARICELLA-ZOSTER VIRUS STRAIN OKA/MERCK LIVE ANTIGEN [Suspect]
     Active Substance: VARICELLA-ZOSTER VIRUS STRAIN OKA/MERCK LIVE ANTIGEN
     Indication: Prophylaxis
     Route: 058
     Dates: start: 20240623
  2. PNEUMOCOCCAL VACCINE POLYVALENT NOS [Suspect]
     Active Substance: PNEUMOCOCCAL VACCINE, POLYVALENT
     Indication: Prophylaxis
     Route: 030
     Dates: start: 20240623
  3. STERILE DILUENT (WATER) [Suspect]
     Active Substance: WATER
     Indication: Prophylaxis
     Route: 058
     Dates: start: 20240623
  4. HAEMOPHILUS B CONJUGATE VACCINE NOS [Suspect]
     Active Substance: HAEMOPHILUS B CONJUGATE VACCINE
     Indication: Prophylaxis
     Route: 030
     Dates: start: 20240623

REACTIONS (2)
  - Product storage error [Unknown]
  - No adverse event [Unknown]

NARRATIVE: CASE EVENT DATE: 20240623
